FAERS Safety Report 9371424 (Version 1)
Quarter: 2013Q2

REPORT INFORMATION
  Report Type: Spontaneous
  Country: US (occurrence: US)
  Receive Date: 20130627
  Receipt Date: 20130627
  Transmission Date: 20140414
  Serious: Yes (Hospitalization)
  Sender: FDA-Public Use
  Company Number: US-JNJFOC-20130609616

PATIENT
  Age: 90 Year
  Sex: Male
  Weight: 101.61 kg

DRUGS (7)
  1. ZYTIGA [Suspect]
     Indication: PROSTATE CANCER
     Route: 048
     Dates: start: 201202
  2. VANCOMYCIN [Suspect]
     Indication: PNEUMONITIS
     Route: 042
     Dates: start: 20130610, end: 20130613
  3. TOBRAMYCIN [Suspect]
     Indication: PNEUMONITIS
     Route: 042
     Dates: start: 20130610, end: 20130613
  4. TOPROL XL [Concomitant]
     Indication: HYPERTENSION
     Route: 048
     Dates: start: 201110
  5. MICARDIS HCTZ [Concomitant]
     Indication: HYPERTENSION
     Route: 048
     Dates: start: 20111024
  6. CYMBALTA [Concomitant]
     Indication: DEPRESSION
     Route: 048
     Dates: start: 20111024
  7. ASPIRIN [Concomitant]
     Indication: CARDIAC DISORDER
     Route: 048
     Dates: start: 201110

REACTIONS (2)
  - Pneumonitis [Recovering/Resolving]
  - Local swelling [Not Recovered/Not Resolved]
